FAERS Safety Report 15308783 (Version 2)
Quarter: 2018Q4

REPORT INFORMATION
  Report Type: Spontaneous
  Country: US (occurrence: US)
  Receive Date: 20180822
  Receipt Date: 20181005
  Transmission Date: 20190204
  Serious: Yes (Death, Hospitalization)
  Sender: FDA-Public Use
  Company Number: US-PRINSTON PHARMACEUTICAL INC.-2018PRN00828

PATIENT
  Age: 88 Year
  Sex: Female
  Weight: 81.63 kg

DRUGS (4)
  1. VALSARTAN. [Suspect]
     Active Substance: VALSARTAN
     Indication: BLOOD PRESSURE ABNORMAL
     Dosage: 320 MG, 1X/DAY
     Route: 048
     Dates: start: 19980701
  2. LANTUS [Concomitant]
     Active Substance: INSULIN GLARGINE
     Dosage: 36 UNK, 2X/DAY
  3. IRON [Concomitant]
     Active Substance: IRON
  4. VITAMIN D [Concomitant]
     Active Substance: CHOLECALCIFEROL

REACTIONS (6)
  - Diarrhoea [Unknown]
  - Appetite disorder [Unknown]
  - Dehydration [Unknown]
  - Nerve compression [Not Recovered/Not Resolved]
  - Pancreatic carcinoma stage IV [Fatal]
  - Pain [Unknown]

NARRATIVE: CASE EVENT DATE: 20180608
